FAERS Safety Report 4850031-2 (Version None)
Quarter: 2005Q4

REPORT INFORMATION
  Report Type: 
  Country: None (occurrence: None)
  Receive Date: 20051123
  Receipt Date: 20041109
  Transmission Date: 20060501
  Serious: Yes (Hospitalization)
  Sender: FDA-Public Use
  Company Number: 2004087863

PATIENT
  Age: 69 Year
  Sex: Male
  Weight: 78.4723 kg

DRUGS (4)
  1. LIPITOR [Suspect]
     Indication: BLOOD CHOLESTEROL INCREASED
     Dosage: 10 MG (10 MG, 1 IN 1 D), ORAL
     Route: 048
     Dates: start: 20031201, end: 20031230
  2. GLIBENCLAMIDE [Concomitant]
  3. METFORMIN HYDROCHLORIDE [Concomitant]
  4. CLOPIDOGREL BISULFATE [Concomitant]

REACTIONS (7)
  - ADVERSE DRUG REACTION [None]
  - ASTHENIA [None]
  - BODY HEIGHT DECREASED [None]
  - DIZZINESS [None]
  - HEADACHE [None]
  - MYALGIA [None]
  - VISION BLURRED [None]
